FAERS Safety Report 11772757 (Version 2)
Quarter: 2015Q4

REPORT INFORMATION
  Report Type: Report from Study
  Country: US (occurrence: US)
  Receive Date: 20151124
  Receipt Date: 20151130
  Transmission Date: 20160304
  Serious: Yes (Other)
  Sender: FDA-Public Use
  Company Number: US-ABBVIE-15K-163-1504866-00

PATIENT
  Age: 56 Year
  Sex: Male

DRUGS (1)
  1. HUMIRA [Suspect]
     Active Substance: ADALIMUMAB
     Indication: COLITIS ULCERATIVE
     Route: 058
     Dates: start: 20150713

REACTIONS (5)
  - Rotator cuff syndrome [Recovering/Resolving]
  - Accident [Recovering/Resolving]
  - Joint injury [Recovering/Resolving]
  - Tendon injury [Recovering/Resolving]
  - Exostosis [Unknown]

NARRATIVE: CASE EVENT DATE: 201511
